FAERS Safety Report 14835936 (Version 1)
Quarter: 2018Q2

REPORT INFORMATION
  Report Type: Spontaneous
  Country: FR (occurrence: FR)
  Receive Date: 20180502
  Receipt Date: 20180502
  Transmission Date: 20180711
  Serious: Yes (Other)
  Sender: FDA-Public Use
  Company Number: FR-MERCK KGAA-2046953

PATIENT
  Age: 64 Year
  Sex: Female

DRUGS (1)
  1. NOVOTHYROX [Suspect]
     Active Substance: LEVOTHYROXINE SODIUM
     Indication: PRODUCT USED FOR UNKNOWN INDICATION
     Dates: start: 20170729, end: 20170929

REACTIONS (21)
  - Major depression [Recovering/Resolving]
  - Sluggishness [Recovering/Resolving]
  - Depressed mood [Recovering/Resolving]
  - Asthenia [Recovering/Resolving]
  - Apathy [Recovering/Resolving]
  - Hypokinesia [Recovering/Resolving]
  - Depression [Recovering/Resolving]
  - Total cholesterol/HDL ratio increased [Recovering/Resolving]
  - Nervousness [Recovering/Resolving]
  - Alopecia [Recovering/Resolving]
  - Vertigo [Recovering/Resolving]
  - Anxiety [Recovering/Resolving]
  - Discomfort [Recovering/Resolving]
  - Irritability [Recovering/Resolving]
  - Blood thyroid stimulating hormone increased [Recovered/Resolved]
  - Low density lipoprotein increased [Recovering/Resolving]
  - Loss of personal independence in daily activities [Recovering/Resolving]
  - Blood cholesterol increased [Recovering/Resolving]
  - High density lipoprotein decreased [Recovering/Resolving]
  - Fatigue [Recovering/Resolving]
  - Stress [Recovering/Resolving]

NARRATIVE: CASE EVENT DATE: 2017
